FAERS Safety Report 4843480-X (Version None)
Quarter: 2005Q4

REPORT INFORMATION
  Report Type: 
  Country: None (occurrence: None)
  Receive Date: 20051101
  Receipt Date: 20041207
  Transmission Date: 20060501
  Serious: Yes (Hospitalization)
  Sender: FDA-Public Use
  Company Number: DSA_25115_2004

PATIENT
  Age: 43 Year
  Sex: Female
  Weight: 97.0698 kg

DRUGS (8)
  1. ATIVAN [Suspect]
     Dosage: DF ONCE PO
     Route: 048
     Dates: start: 20040411, end: 20040411
  2. ATIVAN [Suspect]
     Dosage: 0.5 MG PO
     Route: 048
     Dates: end: 20040401
  3. AMBIEN [Suspect]
     Dosage: DF ONCE PO
     Route: 048
     Dates: start: 20040411, end: 20040411
  4. COCAINE [Suspect]
     Dosage: DF ONCE
     Dates: start: 20040411, end: 20040411
  5. AMBIEN [Suspect]
     Dosage: 10 MG PO
     Route: 048
  6. COCAINE [Suspect]
  7. PEG-INTRON [Suspect]
     Indication: HEPATITIS C
     Dosage: 150 MCG QWK
     Dates: start: 20030101, end: 20040401
  8. REBETOL [Suspect]
     Indication: HEPATITIS C
     Dosage: 1400 MG Q DAY PO
     Route: 048
     Dates: start: 20030101, end: 20040401

REACTIONS (2)
  - INTENTIONAL DRUG MISUSE [None]
  - SUICIDE ATTEMPT [None]
